FAERS Safety Report 15772031 (Version 2)
Quarter: 2020Q1

REPORT INFORMATION
  Report Type: Report from Study
  Country: US (occurrence: US)
  Receive Date: 20181228
  Receipt Date: 20200110
  Transmission Date: 20200409
  Serious: No
  Sender: FDA-Public Use
  Company Number: US-SA-2018SA394153

PATIENT
  Age: 53 Year
  Sex: Female

DRUGS (2)
  1. ALEMTUZUMAB [Suspect]
     Active Substance: ALEMTUZUMAB
     Dosage: 12MG/5ML, UNK
     Route: 041
     Dates: start: 20191230, end: 20191230
  2. ALEMTUZUMAB [Suspect]
     Active Substance: ALEMTUZUMAB
     Indication: RELAPSING MULTIPLE SCLEROSIS
     Dosage: 12MG/5ML, UNK
     Route: 041
     Dates: start: 20191226, end: 20191227

REACTIONS (1)
  - Blood pressure abnormal [Unknown]
